FAERS Safety Report 5525617-2 (Version None)
Quarter: 2007Q4

REPORT INFORMATION
  Report Type: 
  Country: None (occurrence: None)
  Receive Date: 20071120
  Receipt Date: 20071120
  Transmission Date: 20080405
  Serious: No
  Sender: FDA-Public Use
  Company Number: None

PATIENT
  Age: 45 Year
  Sex: Male
  Weight: 79.3795 kg

DRUGS (2)
  1. CAVERJECT [Suspect]
     Indication: DIABETES MELLITUS
     Dosage: 1.0 ML NO MORE THAT 3/WK INTRACAVERN
     Route: 017
     Dates: start: 20000101, end: 20000620
  2. CAVERJECT [Suspect]
     Indication: ERECTILE DYSFUNCTION
     Dosage: 1.0 ML NO MORE THAT 3/WK INTRACAVERN
     Route: 017
     Dates: start: 20000101, end: 20000620

REACTIONS (1)
  - PEYRONIE'S DISEASE [None]
